FAERS Safety Report 21191770 (Version 1)
Quarter: 2022Q3

REPORT INFORMATION
  Report Type: Report from Study
  Country: FR (occurrence: FR)
  Receive Date: 20220809
  Receipt Date: 20220809
  Transmission Date: 20221026
  Serious: Yes (Other)
  Sender: FDA-Public Use
  Company Number: FR-BIOCRYST PHARMACEUTICALS, INC.-2022BCR00507

PATIENT

DRUGS (1)
  1. ORLADEYO [Suspect]
     Active Substance: BEROTRALSTAT HYDROCHLORIDE
     Dosage: UNK
     Dates: start: 20220713

REACTIONS (3)
  - Hereditary angioedema [Recovered/Resolved]
  - Papule [Unknown]
  - Product dose omission in error [Unknown]

NARRATIVE: CASE EVENT DATE: 20220726
